FAERS Safety Report 9908398 (Version 1)
Quarter: 2014Q1

REPORT INFORMATION
  Report Type: Spontaneous
  Country: US (occurrence: US)
  Receive Date: 20140219
  Receipt Date: 20140219
  Transmission Date: 20141002
  Serious: No
  Sender: FDA-Public Use
  Company Number: US-TEVA-390743USA

PATIENT
  Sex: Female

DRUGS (2)
  1. DILTIAZEM [Suspect]
  2. AMIODARONE [Suspect]

REACTIONS (1)
  - Alopecia [Unknown]
